FAERS Safety Report 4485093-8 (Version None)
Quarter: 2004Q4

REPORT INFORMATION
  Report Type: 
  Country: None (occurrence: None)
  Receive Date: 20041026
  Receipt Date: 20031002
  Transmission Date: 20050328
  Serious: No
  Sender: FDA-Public Use
  Company Number: US-BRISTOL-MYERS SQUIBB COMPANY-12400081

PATIENT
  Age: 98 Year
  Sex: Male
  Weight: 52 kg

DRUGS (6)
  1. GLUCOPHAGE XR [Suspect]
     Indication: DIABETES MELLITUS NON-INSULIN-DEPENDENT
     Route: 048
     Dates: start: 20030924, end: 20030927
  2. LANOXIN [Concomitant]
  3. K-DUR 10 [Concomitant]
  4. POTASSIUM [Concomitant]
  5. ACIDOPHILUS [Concomitant]
  6. TYLENOL PM [Concomitant]

REACTIONS (2)
  - ASTHENIA [None]
  - DIARRHOEA [None]
